FAERS Safety Report 6987829-0 (Version None)
Quarter: 2010Q3

REPORT INFORMATION
  Report Type: 
  Country: None (occurrence: None)
  Receive Date: 20100914
  Receipt Date: 20100902
  Transmission Date: 20110219
  Serious: Yes (Hospitalization)
  Sender: FDA-Public Use
  Company Number: DSJ-2010-15243

PATIENT
  Age: 68 Year
  Sex: Female
  Weight: 52.6 kg

DRUGS (6)
  1. OLMETEC (OLMESARTAN MEDOXOMIL) (TABLET) (OLMESARTAN MEDOXOMIL) [Suspect]
     Indication: ESSENTIAL HYPERTENSION
     Dosage: 20 MG, PER ORAL
     Route: 048
     Dates: start: 20091229, end: 20100714
  2. CALBLOCK (AZELNIDIPINE) (AZELNIDIPINE) [Suspect]
     Indication: PRODUCT USED FOR UNKNOWN INDICATION
     Dosage: 16 MG,
     Dates: end: 20100714
  3. TRANSAMIN (TRANEXAMIC ACID) (CAPSULE) (TRANEXAMIC ACID) [Suspect]
     Indication: PRODUCT USED FOR UNKNOWN INDICATION
     Dosage: 3 DOSAGE FORMS,
     Dates: start: 20100707, end: 20100712
  4. PL (CAFFEINE, SALICYLAMIDE, PARACETAMOL, PROMETHAZINE METHYLENE DISALI [Suspect]
     Dosage: 3 GM,
     Dates: start: 20100707, end: 20100712
  5. MUCODYNE (CARBOCISTEINE) (CARBOCISTEINE) [Suspect]
     Dosage: 750 MG,
     Dates: start: 20100707, end: 20100712
  6. CLARITH (CLARITHROMYCIN) (CLARITHROMYCIN) [Suspect]
     Dosage: 400 MG,
     Dates: start: 20100707, end: 20100712

REACTIONS (1)
  - LIVER DISORDER [None]
